FAERS Safety Report 8857434 (Version 1)
Quarter: 2012Q4

REPORT INFORMATION
  Report Type: Report from Study
  Country: US (occurrence: US)
  Receive Date: 20121024
  Receipt Date: 20121024
  Transmission Date: 20130627
  Serious: Yes (Hospitalization)
  Sender: FDA-Public Use
  Company Number: US-ROCHE-1145666

PATIENT
  Age: 50 Year
  Sex: Female

DRUGS (5)
  1. BEVACIZUMAB [Suspect]
     Indication: BREAST CANCER
     Dosage: over 30-90 min on day 1 of weeks 1,3,5,7,9,11,13,15 and 17
     Route: 065
     Dates: start: 20120822
  2. PACLITAXEL [Suspect]
     Indication: BREAST CANCER
     Dosage: over 1 hr on day 1 of weeks 1 to 12
     Route: 042
  3. CARBOPLATIN [Suspect]
     Indication: BREAST CANCER
     Dosage: AUC 6 IV over 30 min on day 1 of weeks 1,4,7 and 10
     Route: 042
  4. DOXORUBICIN [Suspect]
     Indication: BREAST CANCER
     Dosage: over 5-10 min on day 1 of weeks 13, 15, 17 and 19
     Route: 042
  5. CYCLOPHOSPHAMIDE [Suspect]
     Indication: BREAST CANCER
     Dosage: over 5-30 min on day 1 of weeks 13,15,17 and 19
     Route: 042

REACTIONS (5)
  - Renal failure acute [Unknown]
  - Dehydration [Unknown]
  - Muscular weakness [Unknown]
  - Hypokalaemia [Unknown]
  - Hyponatraemia [Unknown]
